FAERS Safety Report 25590502 (Version 1)
Quarter: 2025Q3

REPORT INFORMATION
  Report Type: Spontaneous
  Country: US (occurrence: US)
  Receive Date: 20250722
  Receipt Date: 20250722
  Transmission Date: 20251020
  Serious: No
  Sender: PFIZER
  Company Number: US-PFIZER INC-202500146274

PATIENT
  Age: 60 Year
  Sex: Male

DRUGS (1)
  1. LORBRENA [Suspect]
     Active Substance: LORLATINIB
     Indication: Non-small cell lung cancer

REACTIONS (6)
  - Oedema peripheral [Unknown]
  - Hyperlipidaemia [Unknown]
  - Slow speech [Unknown]
  - Amnesia [Unknown]
  - Irritability [Unknown]
  - Hypertension [Unknown]
